FAERS Safety Report 9669927 (Version 1)
Quarter: 2013Q4

REPORT INFORMATION
  Report Type: Spontaneous
  Country: US (occurrence: US)
  Receive Date: 20131105
  Receipt Date: 20131105
  Transmission Date: 20140711
  Serious: No
  Sender: FDA-Public Use
  Company Number: US-BAYER-2013-134975

PATIENT
  Age: 12 Year
  Sex: Male

DRUGS (1)
  1. ALEVE CAPLET [Suspect]
     Indication: PYREXIA
     Dosage: 2 DF, Q4HR
     Route: 048
     Dates: start: 20131030, end: 20131031

REACTIONS (1)
  - Extra dose administered [Unknown]
